FAERS Safety Report 11214562 (Version 1)
Quarter: 2015Q2

REPORT INFORMATION
  Report Type: Spontaneous
  Country: US (occurrence: None)
  Receive Date: 20150608
  Receipt Date: 20150608
  Transmission Date: 20150821
  Serious: No
  Sender: FDA-Public Use
  Company Number: HYP201504-000034

PATIENT
  Age: 17 Year
  Sex: Female
  Weight: 61.2 kg

DRUGS (1)
  1. RAVICTI [Suspect]
     Active Substance: GLYCEROL PHENYLBUTYRATE
     Indication: ORNITHINE TRANSCARBAMOYLASE DEFICIENCY
     Dates: start: 201303

REACTIONS (4)
  - Fatigue [None]
  - Vomiting [None]
  - Hyperammonaemia [None]
  - Drug ineffective [None]

NARRATIVE: CASE EVENT DATE: 20150307
